FAERS Safety Report 15044715 (Version 3)
Quarter: 2018Q3

REPORT INFORMATION
  Report Type: Report from Study
  Country: US (occurrence: US)
  Receive Date: 20180621
  Receipt Date: 20180803
  Transmission Date: 20181010
  Serious: Yes (Death, Life-Threatening, Hospitalization)
  Sender: FDA-Public Use
  Company Number: US-EISAI MEDICAL RESEARCH-EC-2018-041599

PATIENT
  Age: 52 Year
  Sex: Female
  Weight: 70.8 kg

DRUGS (15)
  1. ERIBULIN [Suspect]
     Active Substance: ERIBULIN
     Indication: BREAST CANCER METASTATIC
     Route: 041
     Dates: start: 20180612
  2. VITAMIN D3 [Concomitant]
     Active Substance: CHOLECALCIFEROL
  3. TYLENOL [Concomitant]
     Active Substance: ACETAMINOPHEN
  4. OXYCODONE [Concomitant]
     Active Substance: OXYCODONE
  5. ROCEPHIN [Concomitant]
     Active Substance: CEFTRIAXONE SODIUM
  6. NEUPOGEN [Concomitant]
     Active Substance: FILGRASTIM
  7. PEMBROLIZUMAB. [Suspect]
     Active Substance: PEMBROLIZUMAB
     Indication: BREAST CANCER METASTATIC
     Route: 041
     Dates: start: 20180612
  8. ATIVAN [Concomitant]
     Active Substance: LORAZEPAM
  9. COMPAZINE [Concomitant]
     Active Substance: PROCHLORPERAZINE MALEATE
  10. ZOFRAN [Concomitant]
     Active Substance: ONDANSETRON HYDROCHLORIDE
  11. COLACE [Concomitant]
     Active Substance: DOCUSATE SODIUM
  12. ADVIL [Concomitant]
     Active Substance: IBUPROFEN
  13. DECADRON [Concomitant]
     Active Substance: DEXAMETHASONE
  14. ZOFRAN [Concomitant]
     Active Substance: ONDANSETRON HYDROCHLORIDE
  15. ALBUTEROL SULFATE. [Concomitant]
     Active Substance: ALBUTEROL SULFATE

REACTIONS (10)
  - Sepsis [Fatal]
  - Nausea [Not Recovered/Not Resolved]
  - Aspartate aminotransferase increased [Not Recovered/Not Resolved]
  - Hypokalaemia [Not Recovered/Not Resolved]
  - Hypotension [Not Recovered/Not Resolved]
  - Respiratory failure [Fatal]
  - Neutropenia [Not Recovered/Not Resolved]
  - Hepatic failure [Fatal]
  - Mucosal inflammation [Not Recovered/Not Resolved]
  - Colitis [Fatal]

NARRATIVE: CASE EVENT DATE: 20180619
